FAERS Safety Report 10150763 (Version 1)
Quarter: 2014Q2

REPORT INFORMATION
  Report Type: Spontaneous
  Country: US (occurrence: US)
  Receive Date: 20140502
  Receipt Date: 20140502
  Transmission Date: 20141212
  Serious: No
  Sender: FDA-Public Use
  Company Number: US-ASTRAZENECA-2013SE42898

PATIENT
  Sex: Female

DRUGS (1)
  1. PRILOSEC OTC [Suspect]
     Route: 048
     Dates: start: 20130612, end: 20130612

REACTIONS (4)
  - Peripheral coldness [Unknown]
  - Heart rate increased [Unknown]
  - Tremor [Unknown]
  - Hyperhidrosis [Unknown]
